FAERS Safety Report 21576532 (Version 4)
Quarter: 2023Q2

REPORT INFORMATION
  Report Type: Report from Study
  Country: DE (occurrence: DE)
  Receive Date: 20221110
  Receipt Date: 20230407
  Transmission Date: 20230722
  Serious: No
  Sender: FDA-Public Use
  Company Number: DE-PFM-2021-08165

PATIENT

DRUGS (7)
  1. NERATINIB [Suspect]
     Active Substance: NERATINIB
     Indication: Breast cancer
     Dosage: 160 MG/DAY
     Route: 048
     Dates: start: 20210713, end: 20210715
  2. NERATINIB [Suspect]
     Active Substance: NERATINIB
     Dosage: 200 MG, QD (1/DAY)
     Route: 048
     Dates: start: 20210720
  3. NERATINIB [Suspect]
     Active Substance: NERATINIB
     Dosage: UNK
     Route: 048
     Dates: start: 20220407
  4. NERATINIB [Suspect]
     Active Substance: NERATINIB
     Dosage: UNK
     Route: 048
     Dates: start: 20220530
  5. LOPERAMIDE [Concomitant]
     Active Substance: LOPERAMIDE
     Indication: Prophylaxis against diarrhoea
     Dosage: 2 MG, TID (3/DAY)
     Route: 048
     Dates: start: 20210715, end: 20210716
  6. LOPERAMIDE [Concomitant]
     Active Substance: LOPERAMIDE
     Dosage: 4 MG,DAILY
     Route: 048
     Dates: start: 20210717, end: 20210719
  7. LOPERAMIDE [Concomitant]
     Active Substance: LOPERAMIDE
     Dosage: 2 MG, DAILY
     Route: 065
     Dates: start: 20210720

REACTIONS (6)
  - Tonsillitis [Recovered/Resolved]
  - Diarrhoea [Recovered/Resolved]
  - COVID-19 [Recovered/Resolved]
  - Haematuria [Recovered/Resolved]
  - Prescribed underdose [Unknown]
  - Off label use [Unknown]

NARRATIVE: CASE EVENT DATE: 20210713
